FAERS Safety Report 6701223-9 (Version None)
Quarter: 2010Q2

REPORT INFORMATION
  Report Type: 
  Country: None (occurrence: None)
  Receive Date: 20100427
  Receipt Date: 20100413
  Transmission Date: 20101027
  Serious: Yes (Hospitalization)
  Sender: FDA-Public Use
  Company Number: 2009-2242

PATIENT
  Age: 46 Year
  Sex: Female
  Weight: 63 kg

DRUGS (4)
  1. APO-GO AMPOULES (APO-GO) (APOMORPHINE HYDROCHLORIDE) (APOMORPHINE HYDR [Suspect]
     Indication: PARKINSON'S DISEASE
     Dosage: 64 MG (4 MG, 16 HOURS/DAY), SUBCUTANEOUS
     Route: 058
     Dates: start: 20080425, end: 20080829
  2. LEVODOPA (LEVODOPA) (LEVODOPA) [Concomitant]
  3. CIPRAMIL (CITALOPRAM) HYDROBROMIDE) (CITALOPRAM) [Concomitant]
  4. MIRTAZAPINE [Concomitant]

REACTIONS (8)
  - CONDITION AGGRAVATED [None]
  - DISEASE PROGRESSION [None]
  - DRUG INEFFECTIVE [None]
  - FATIGUE [None]
  - GRANULOMA [None]
  - ON AND OFF PHENOMENON [None]
  - PARKINSON'S DISEASE [None]
  - SOMNOLENCE [None]
